FAERS Safety Report 12010902 (Version 2)
Quarter: 2016Q1

REPORT INFORMATION
  Report Type: Other
  Country: CA (occurrence: CA)
  Receive Date: 20160205
  Receipt Date: 20160216
  Transmission Date: 20160526
  Serious: Yes (Hospitalization, Other)
  Sender: FDA-Public Use
  Company Number: CA-DUCHESNAY INC.-1047397

PATIENT
  Sex: Female
  Weight: 3 kg

DRUGS (10)
  1. OPIOIDS [Suspect]
     Active Substance: UNSPECIFIED INGREDIENT
     Route: 064
  2. SUBOXONE [Suspect]
     Active Substance: BUPRENORPHINE HYDROCHLORIDE\NALOXONE HYDROCHLORIDE
     Route: 064
  3. TYLENOL [Suspect]
     Active Substance: ACETAMINOPHEN
     Route: 064
  4. DICLEGIS [Suspect]
     Active Substance: DOXYLAMINE SUCCINATE\PYRIDOXINE HYDROCHLORIDE
     Indication: NAUSEA
     Route: 064
  5. CENTRUM MATERNA [Suspect]
     Active Substance: MINERALS\VITAMINS
     Route: 064
  6. SUBUTEX [Suspect]
     Active Substance: BUPRENORPHINE HYDROCHLORIDE
     Route: 063
  7. SUBUTEX [Suspect]
     Active Substance: BUPRENORPHINE HYDROCHLORIDE
     Route: 064
  8. OPIOIDS [Suspect]
     Active Substance: UNSPECIFIED INGREDIENT
     Route: 063
  9. SUBOXONE [Suspect]
     Active Substance: BUPRENORPHINE HYDROCHLORIDE\NALOXONE HYDROCHLORIDE
     Route: 063
  10. DICLEGIS [Suspect]
     Active Substance: DOXYLAMINE SUCCINATE\PYRIDOXINE HYDROCHLORIDE
     Indication: VOMITING
     Route: 064

REACTIONS (3)
  - Jaundice neonatal [Unknown]
  - Exposure during breast feeding [None]
  - Maternal drugs affecting foetus [None]
